FAERS Safety Report 13053938 (Version 1)
Quarter: 2016Q4

REPORT INFORMATION
  Report Type: Spontaneous
  Country: CA (occurrence: CA)
  Receive Date: 20161222
  Receipt Date: 20161222
  Transmission Date: 20170207
  Serious: Yes (Death, Disabling)
  Sender: FDA-Public Use
  Company Number: PHHY2016CA079693

PATIENT
  Age: 50 Year
  Sex: Male

DRUGS (1)
  1. COSENTYX [Suspect]
     Active Substance: SECUKINUMAB
     Indication: PSORIASIS
     Dosage: 300 MG, QMO AFTER LOADING DOSE
     Route: 058
     Dates: start: 201603, end: 201605

REACTIONS (2)
  - Death [Fatal]
  - Vasculitis [Recovered/Resolved]
